FAERS Safety Report 12923908 (Version 1)
Quarter: 2016Q4

REPORT INFORMATION
  Report Type: Spontaneous
  Country: US (occurrence: US)
  Receive Date: 20161109
  Receipt Date: 20161109
  Transmission Date: 20170207
  Serious: No
  Sender: FDA-Public Use
  Company Number: None

PATIENT
  Age: 63 Year
  Sex: Female
  Weight: 70.37 kg

DRUGS (10)
  1. LOTEMAX [Concomitant]
     Active Substance: LOTEPREDNOL ETABONATE
  2. XIIDRA [Suspect]
     Active Substance: LIFITEGRAST
     Indication: DRY EYE
     Route: 047
     Dates: start: 20161010, end: 20161010
  3. RESTASIS [Concomitant]
     Active Substance: CYCLOSPORINE
  4. CARTIA XT [Concomitant]
     Active Substance: DILTIAZEM HYDROCHLORIDE
  5. ATORVASTATIN [Concomitant]
     Active Substance: ATORVASTATIN
  6. BEPREVE [Concomitant]
     Active Substance: BEPOTASTINE BESILATE
  7. OASIS TEARS [Concomitant]
     Active Substance: GLYCERIN
  8. FLUTICASONE [Concomitant]
     Active Substance: FLUTICASONE\FLUTICASONE PROPIONATE
  9. TELMISARTAN. [Concomitant]
     Active Substance: TELMISARTAN
  10. MASCULAR SHIELD [Concomitant]

REACTIONS (2)
  - Therapy cessation [None]
  - Ocular hyperaemia [None]

NARRATIVE: CASE EVENT DATE: 20161010
